FAERS Safety Report 5082483-X (Version None)
Quarter: 2006Q3

REPORT INFORMATION
  Report Type: 
  Country: None (occurrence: None)
  Receive Date: 20060817
  Receipt Date: 20060802
  Transmission Date: 20061208
  Serious: Yes (Hospitalization)
  Sender: FDA-Public Use
  Company Number: KR-GILEAD-2006-0009960

PATIENT
  Age: 45 Year
  Sex: Male

DRUGS (1)
  1. HEPSERA [Suspect]
     Indication: HEPATITIS B
     Route: 048
     Dates: start: 20050715, end: 20060729

REACTIONS (4)
  - FACE OEDEMA [None]
  - HAEMATURIA [None]
  - MYALGIA [None]
  - WEIGHT INCREASED [None]
